FAERS Safety Report 5110079-X (Version None)
Quarter: 2006Q3

REPORT INFORMATION
  Report Type: 
  Country: None (occurrence: None)
  Receive Date: 20060921
  Receipt Date: 20060913
  Transmission Date: 20061208
  Serious: Yes (Hospitalization)
  Sender: FDA-Public Use
  Company Number: FR-AVENTIS-200613164FR

PATIENT
  Age: 2 Day
  Sex: Female

DRUGS (3)
  1. CLAFORAN [Suspect]
     Indication: VERTICAL INFECTION TRANSMISSION
     Route: 042
     Dates: start: 20060813, end: 20060813
  2. GENTAMICIN [Suspect]
     Indication: VERTICAL INFECTION TRANSMISSION
     Route: 042
     Dates: start: 20060813, end: 20060813
  3. CLAMOXYL [Suspect]
     Indication: VERTICAL INFECTION TRANSMISSION
     Route: 042
     Dates: start: 20060813, end: 20060813

REACTIONS (2)
  - SKIN INFLAMMATION [None]
  - SKIN NECROSIS [None]
